FAERS Safety Report 5254870-8 (Version None)
Quarter: 2007Q1

REPORT INFORMATION
  Report Type: 
  Country: None (occurrence: None)
  Receive Date: 20070305
  Receipt Date: 20070221
  Transmission Date: 20070707
  Serious: Yes (Death, Hospitalization)
  Sender: FDA-Public Use
  Company Number: MX-BRISTOL-MYERS SQUIBB COMPANY-13687108

PATIENT
  Age: 76 Year
  Sex: Male
  Weight: 39 kg

DRUGS (9)
  1. PACLITAXEL [Suspect]
     Indication: NON-SMALL CELL LUNG CANCER
     Route: 042
     Dates: start: 20070202, end: 20070202
  2. CARBOPLATIN [Suspect]
     Indication: NON-SMALL CELL LUNG CANCER
     Route: 042
     Dates: start: 20070202, end: 20070202
  3. ACETAMINOPHEN [Concomitant]
     Route: 048
     Dates: start: 20070202, end: 20070208
  4. ASPIRIN [Concomitant]
     Route: 048
     Dates: start: 20070102, end: 20070208
  5. CELECOXIB [Concomitant]
     Route: 048
     Dates: start: 20070202, end: 20070208
  6. DEXTROMETHORPHAN [Concomitant]
     Route: 048
     Dates: start: 20070202, end: 20070208
  7. HALOPERIDOL [Concomitant]
     Route: 048
     Dates: start: 20070202, end: 20070208
  8. OMEPRAZOLE [Concomitant]
     Route: 048
     Dates: start: 20070202, end: 20070208
  9. SODIUM PICOSULFATE [Concomitant]
     Route: 048
     Dates: start: 20070202, end: 20070208

REACTIONS (3)
  - CARDIAC ARREST [None]
  - DEHYDRATION [None]
  - HYPERKALAEMIA [None]
